FAERS Safety Report 15489986 (Version 1)
Quarter: 2018Q4

REPORT INFORMATION
  Report Type: Report from Study
  Country: US (occurrence: US)
  Receive Date: 20181011
  Receipt Date: 20181011
  Transmission Date: 20190205
  Serious: Yes (Hospitalization)
  Sender: FDA-Public Use
  Company Number: US-ROCHE-2194738

PATIENT
  Age: 65 Year
  Sex: Female
  Weight: 74.2 kg

DRUGS (1)
  1. BEVACIZUMAB. [Suspect]
     Active Substance: BEVACIZUMAB
     Indication: NON-SMALL CELL LUNG CANCER
     Dosage: TOTAL DOSE ADMINISTERED THIS COURSE: 934.5 MG?DATE LAST ADMINISTERED: 23/APR/2015.
     Route: 042
     Dates: start: 20140113, end: 20150423

REACTIONS (1)
  - Arteriovenous malformation [Recovered/Resolved]

NARRATIVE: CASE EVENT DATE: 20180822
